FAERS Safety Report 4714888-8 (Version None)
Quarter: 2005Q3

REPORT INFORMATION
  Report Type: 
  Country: None (occurrence: None)
  Receive Date: 20050715
  Receipt Date: 20030521
  Transmission Date: 20060218
  Serious: Yes (Hospitalization)
  Sender: FDA-Public Use
  Company Number: PHBS2003JP05267

PATIENT
  Age: 87 Year
  Sex: Female

DRUGS (19)
  1. ANAFRANIL [Suspect]
     Indication: MAJOR DEPRESSION
     Dosage: 75 MG/DAY
     Route: 048
     Dates: start: 19991113, end: 19991119
  2. ANAFRANIL [Suspect]
     Dosage: 150 MG/DAY
     Route: 048
     Dates: start: 19991120, end: 19991123
  3. ANAFRANIL [Suspect]
     Dosage: 100 MG/DAY
     Route: 048
     Dates: start: 19991124, end: 19991129
  4. ANAFRANIL [Suspect]
     Dosage: 50 MG/DAY
     Route: 048
     Dates: start: 19991130, end: 19991203
  5. ANAFRANIL [Suspect]
     Dosage: 30 MG/DAY
     Route: 048
     Dates: start: 19991218, end: 19991219
  6. ANAFRANIL [Suspect]
     Dosage: 50 MG/D
     Route: 048
     Dates: start: 19991220, end: 19991223
  7. ANAFRANIL [Suspect]
     Dosage: 75 MG/D
     Route: 048
     Dates: start: 19991224
  8. DRAGANON [Suspect]
     Indication: MAJOR DEPRESSION
     Dosage: 600 MG/DAY
     Route: 065
     Dates: start: 19991124, end: 19991129
  9. GRAMALIL [Suspect]
     Dosage: 150 MG/DAY
     Route: 065
  10. RISPERDAL [Suspect]
     Dosage: 1 MG/DAY
     Route: 065
  11. MAGNESIUM OXIDE [Concomitant]
     Dosage: 0.6 G/DAY
     Route: 048
     Dates: end: 19991208
  12. PURSENNID [Concomitant]
     Dosage: 12 MG/DAY
     Route: 048
     Dates: end: 19991208
  13. LOXOPROFEN [Concomitant]
  14. TIZANIDINE HCL [Concomitant]
  15. IMIPRAMINE [Suspect]
     Indication: DEPRESSIVE SYMPTOM
  16. TRAZODONE [Concomitant]
  17. FLUVOXAMINE [Concomitant]
  18. BROMOCRIPTINE MESYLATE [Suspect]
  19. HYDROXYZINE [Concomitant]
     Dosage: 20 MG, QHS
     Dates: start: 19991218

REACTIONS (12)
  - ANURIA [None]
  - BLOOD CREATINE PHOSPHOKINASE INCREASED [None]
  - DELIRIUM [None]
  - DEPRESSED LEVEL OF CONSCIOUSNESS [None]
  - DISORIENTATION [None]
  - HALLUCINATION, VISUAL [None]
  - NEUROLEPTIC MALIGNANT SYNDROME [None]
  - PHONOLOGICAL DISORDER [None]
  - SALIVARY HYPERSECRETION [None]
  - SOMATIC DELUSION [None]
  - TREMOR [None]
  - URINARY RETENTION [None]
